FAERS Safety Report 5722988-9 (Version None)
Quarter: 2008Q2

REPORT INFORMATION
  Report Type: 
  Country: None (occurrence: None)
  Receive Date: 20080423
  Receipt Date: 20070918
  Transmission Date: 20081010
  Serious: Yes (Life-Threatening, Hospitalization)
  Sender: FDA-Public Use
  Company Number: 247904

PATIENT
  Age: 56 Year
  Sex: Male
  Weight: 87.5 kg

DRUGS (3)
  1. AVASTIN [Suspect]
     Indication: COLORECTAL CANCER METASTATIC
     Dosage: 880 MG, Q2W, INTRAVENOUS
     Route: 042
     Dates: start: 20070613
  2. ELOXATIN [Concomitant]
  3. FLUOROURACIL [Concomitant]

REACTIONS (1)
  - APPENDICITIS PERFORATED [None]
